FAERS Safety Report 20239055 (Version 1)
Quarter: 2021Q4

REPORT INFORMATION
  Report Type: Spontaneous
  Country: US (occurrence: US)
  Receive Date: 20211228
  Receipt Date: 20211228
  Transmission Date: 20220303
  Serious: No
  Sender: FDA-Public Use
  Company Number: US-BAUSCH-BL-2021-041926

PATIENT
  Sex: Male

DRUGS (1)
  1. LACRISERT [Suspect]
     Active Substance: HYDROXYPROPYL CELLULOSE
     Indication: Product used for unknown indication
     Route: 047

REACTIONS (3)
  - Instillation site erythema [Not Recovered/Not Resolved]
  - Instillation site irritation [Not Recovered/Not Resolved]
  - Therapy interrupted [Unknown]
